FAERS Safety Report 7979982-7 (Version None)
Quarter: 2011Q4

REPORT INFORMATION
  Report Type: 
  Country: None (occurrence: None)
  Receive Date: 20111208
  Receipt Date: 20111012
  Transmission Date: 20120403
  Serious: Yes (Hospitalization)
  Sender: FDA-Public Use
  Company Number: 2011SP056179

PATIENT
  Age: 32 Year
  Sex: Male
  Weight: 83.8 kg

DRUGS (1)
  1. TEMODAL [Suspect]
     Indication: PRODUCT USED FOR UNKNOWN INDICATION
     Dosage: 420 MG; PO
     Route: 048
     Dates: start: 20110914, end: 20110918

REACTIONS (2)
  - MENINGITIS STAPHYLOCOCCAL [None]
  - DRUG HYPERSENSITIVITY [None]
